FAERS Safety Report 21161753 (Version 1)
Quarter: 2022Q3

REPORT INFORMATION
  Report Type: Spontaneous
  Country: US (occurrence: None)
  Receive Date: 20220802
  Receipt Date: 20220802
  Transmission Date: 20221026
  Serious: No
  Sender: FDA-Public Use
  Company Number: None

PATIENT
  Sex: Male

DRUGS (1)
  1. ERLOTINIB [Suspect]
     Active Substance: ERLOTINIB
     Indication: Lung carcinoma cell type unspecified stage 0
     Dosage: 150MG DAILY BY MOUTH
     Route: 048
     Dates: start: 20220801

REACTIONS (1)
  - Rash [None]
